FAERS Safety Report 4520329-6 (Version None)
Quarter: 2004Q4

REPORT INFORMATION
  Report Type: 
  Country: None (occurrence: None)
  Receive Date: 20041207
  Receipt Date: 20041129
  Transmission Date: 20050328
  Serious: Yes (Death, Hospitalization)
  Sender: FDA-Public Use
  Company Number: US-GLAXOSMITHKLINE-A0535593A

PATIENT
  Age: 71 Year
  Sex: Male

DRUGS (2)
  1. FLOLAN [Suspect]
     Indication: PULMONARY HYPERTENSION
  2. COUMADIN [Concomitant]
     Indication: ANTICOAGULANT THERAPY

REACTIONS (6)
  - ABDOMINAL DISTENSION [None]
  - EAR HAEMORRHAGE [None]
  - EATING DISORDER [None]
  - HAEMORRHAGE [None]
  - PULMONARY HYPERTENSION [None]
  - RECTAL HAEMORRHAGE [None]
